FAERS Safety Report 11379314 (Version 1)
Quarter: 2015Q3

REPORT INFORMATION
  Report Type: Spontaneous
  Country: US (occurrence: US)
  Receive Date: 20150811
  Receipt Date: 20150811
  Transmission Date: 20151125
  Serious: Yes (Other)
  Sender: FDA-Public Use
  Company Number: US-ELI_LILLY_AND_COMPANY-US200907002962

PATIENT
  Sex: Male

DRUGS (1)
  1. CIALIS [Suspect]
     Active Substance: TADALAFIL
     Dosage: 5 MG, UNKNOWN
     Route: 065

REACTIONS (2)
  - Priapism [Recovered/Resolved with Sequelae]
  - Erectile dysfunction [Not Recovered/Not Resolved]
